FAERS Safety Report 4845366-3 (Version None)
Quarter: 2005Q4

REPORT INFORMATION
  Report Type: 
  Country: None (occurrence: None)
  Receive Date: 20051125
  Receipt Date: 20051114
  Transmission Date: 20060501
  Serious: Yes (Life-Threatening)
  Sender: FDA-Public Use
  Company Number: 2005BH002920

PATIENT
  Age: 65 Year
  Sex: Female

DRUGS (4)
  1. DEXTROSE 5% [Suspect]
     Indication: BRONCHOPNEUMONIA
     Dosage: 500 ML; ONCE; IV
     Route: 042
     Dates: start: 20051108, end: 20051108
  2. EPARGRISEOVIT (EPARGRISEOVIT) [Suspect]
     Indication: BRONCHOPNEUMONIA
     Dosage: 12 VIAL; ONCE; IV
     Route: 042
     Dates: start: 20051108, end: 20051108
  3. CEFONICIDE (CEFONICIDE) [Suspect]
     Indication: BRONCHOPNEUMONIA
     Dosage: 1 GM; ONCE; IM
     Route: 030
     Dates: start: 20051108, end: 20051108
  4. LANOXIN [Concomitant]

REACTIONS (1)
  - ANAPHYLACTIC SHOCK [None]
